FAERS Safety Report 7108492-4 (Version None)
Quarter: 2010Q4

REPORT INFORMATION
  Report Type: 
  Country: None (occurrence: None)
  Receive Date: 20101117
  Receipt Date: 20101110
  Transmission Date: 20110411
  Serious: Yes (Hospitalization)
  Sender: FDA-Public Use
  Company Number: US-PFIZER INC-2010147321

PATIENT
  Sex: Female
  Weight: 53.07 kg

DRUGS (7)
  1. LIPITOR [Suspect]
     Indication: ARTERIOSCLEROSIS
     Dosage: UNK
     Dates: end: 20101111
  2. ACETYLSALICYLIC ACID [Concomitant]
     Dosage: 81 MG, UNK
  3. LASIX [Concomitant]
     Dosage: 20 MG, UNK
  4. SYNTHROID [Concomitant]
     Indication: HYPOTHYROIDISM
     Dosage: 75 UG, UNK
  5. LISINOPRIL [Concomitant]
     Dosage: 5 MG, UNK
  6. METOPROLOL TARTRATE [Concomitant]
     Dosage: 50 MG, UNK
  7. KLOR-CON [Concomitant]
     Dosage: 10 MEQ, UNK

REACTIONS (4)
  - ABDOMINAL DISCOMFORT [None]
  - ASTHENIA [None]
  - BLOOD SODIUM DECREASED [None]
  - FEELING ABNORMAL [None]
